FAERS Safety Report 23422300 (Version 2)
Quarter: 2024Q3

REPORT INFORMATION
  Report Type: Spontaneous
  Country: US (occurrence: US)
  Receive Date: 20240119
  Receipt Date: 20240923
  Transmission Date: 20241016
  Serious: No
  Sender: INCYTE
  Company Number: US-INCYTE CORPORATION-2024IN000558

PATIENT

DRUGS (2)
  1. JAKAFI [Suspect]
     Active Substance: RUXOLITINIB
     Indication: Polycythaemia vera
     Dosage: 10 MILLIGRAM, BID
     Route: 048
     Dates: start: 20231212
  2. JAKAFI [Suspect]
     Active Substance: RUXOLITINIB
     Dosage: 5 MILLIGRAM, BID
     Route: 048
     Dates: start: 20231212

REACTIONS (7)
  - Nasopharyngitis [Unknown]
  - Pruritus [Unknown]
  - Paraesthesia [Unknown]
  - Decreased activity [Unknown]
  - General physical health deterioration [Unknown]
  - Asthenia [Unknown]
  - Product dose omission in error [Unknown]
